FAERS Safety Report 15570203 (Version 1)
Quarter: 2018Q4

REPORT INFORMATION
  Report Type: Spontaneous
  Country: US (occurrence: US)
  Receive Date: 20181031
  Receipt Date: 20181031
  Transmission Date: 20190205
  Serious: No
  Sender: FDA-Public Use
  Company Number: US-ASTRAZENECA-2018SF28046

PATIENT
  Age: 24219 Day
  Sex: Female

DRUGS (1)
  1. XIGDUO XR [Suspect]
     Active Substance: DAPAGLIFLOZIN PROPANEDIOL\METFORMIN HYDROCHLORIDE
     Indication: TYPE 2 DIABETES MELLITUS
     Dosage: 10MG/1000MG DAILY
     Route: 048
     Dates: start: 20180917, end: 20180920

REACTIONS (7)
  - Urticaria [Unknown]
  - Palpitations [Unknown]
  - Nausea [Unknown]
  - Headache [Unknown]
  - Vomiting [Unknown]
  - Rash [Unknown]
  - Dysuria [Unknown]

NARRATIVE: CASE EVENT DATE: 20180917
